FAERS Safety Report 14106547 (Version 1)
Quarter: 2017Q4

REPORT INFORMATION
  Report Type: Spontaneous
  Country: US (occurrence: US)
  Receive Date: 20171019
  Receipt Date: 20171019
  Transmission Date: 20180321
  Serious: No
  Sender: FDA-Public Use
  Company Number: US-PFIZER INC-2017446470

PATIENT
  Age: 40 Year

DRUGS (6)
  1. SULPHAZINE [Suspect]
     Active Substance: SULFADIAZINE
     Dosage: UNK
  2. ACITRETIN. [Suspect]
     Active Substance: ACITRETIN
     Dosage: UNK
  3. FOLIC [Suspect]
     Active Substance: FOLIC ACID
     Dosage: UNK
  4. HUMIRA [Suspect]
     Active Substance: ADALIMUMAB
     Indication: PSORIATIC ARTHROPATHY
     Dosage: UNK
     Route: 058
  5. HUMIRA [Suspect]
     Active Substance: ADALIMUMAB
     Indication: PSORIASIS
  6. METHOTREXATE SODIUM. [Suspect]
     Active Substance: METHOTREXATE SODIUM
     Dosage: UNK

REACTIONS (4)
  - Feeling abnormal [Unknown]
  - Renal cyst [Unknown]
  - Hepatic steatosis [Unknown]
  - Arthralgia [Unknown]
